FAERS Safety Report 9520727 (Version 1)
Quarter: 2013Q3

REPORT INFORMATION
  Report Type: Spontaneous
  Country: VE (occurrence: VE)
  Receive Date: 20130913
  Receipt Date: 20130913
  Transmission Date: 20140515
  Serious: Yes (Death, Other)
  Sender: FDA-Public Use
  Company Number: VE-AMGEN-VENSP2013063630

PATIENT
  Sex: Female

DRUGS (1)
  1. ENBREL [Suspect]
     Indication: RHEUMATOID ARTHRITIS
     Dosage: 50 MG, WEEKLY
     Route: 058
     Dates: start: 201304, end: 201306

REACTIONS (4)
  - Cough [Unknown]
  - Depression [Unknown]
  - Pneumonia [Fatal]
  - Influenza [Unknown]
